FAERS Safety Report 7448442-4 (Version None)
Quarter: 2011Q2

REPORT INFORMATION
  Report Type: 
  Country: None (occurrence: None)
  Receive Date: 20110429
  Receipt Date: 20100614
  Transmission Date: 20111010
  Serious: No
  Sender: FDA-Public Use
  Company Number: US-ASTRAZENECA-2010SE27681

PATIENT
  Age: 46 Year
  Sex: Female
  Weight: 73.9 kg

DRUGS (10)
  1. FLONASE [Concomitant]
     Indication: HYPERSENSITIVITY
  2. LORATADINE [Concomitant]
     Indication: HYPERSENSITIVITY
  3. NEXIUM [Suspect]
     Indication: GASTROOESOPHAGEAL REFLUX DISEASE
     Route: 048
  4. ADVAIR DISKUS 100/50 [Concomitant]
     Indication: ASTHMA
  5. PREVACID [Suspect]
     Indication: GASTROOESOPHAGEAL REFLUX DISEASE
     Route: 065
  6. MULTI-VITAMIN [Concomitant]
  7. LEXAPRO [Concomitant]
     Indication: DEPRESSION
  8. PRILOSEC [Suspect]
     Indication: GASTROOESOPHAGEAL REFLUX DISEASE
     Route: 048
  9. ABILIFY [Concomitant]
  10. CALCIUM [Concomitant]
     Indication: OSTEOPOROSIS

REACTIONS (4)
  - MALAISE [None]
  - DRUG INEFFECTIVE [None]
  - DYSPEPSIA [None]
  - VOMITING [None]
